FAERS Safety Report 7208392-5 (Version None)
Quarter: 2011Q1

REPORT INFORMATION
  Report Type: 
  Country: None (occurrence: None)
  Receive Date: 20110104
  Receipt Date: 20101223
  Transmission Date: 20110831
  Serious: Yes (Other)
  Sender: FDA-Public Use
  Company Number: PHHY2010US88152

PATIENT
  Age: 48 Year
  Sex: Male
  Weight: 70.3 kg

DRUGS (2)
  1. TEGRETOL [Suspect]
  2. CENTRUM [Suspect]
     Dosage: UNK
     Route: 048
     Dates: start: 20090101

REACTIONS (3)
  - COELIAC DISEASE [None]
  - PRURITUS [None]
  - URTICARIA [None]
